FAERS Safety Report 13448259 (Version 2)
Quarter: 2017Q2

REPORT INFORMATION
  Report Type: Spontaneous
  Country: DE (occurrence: DE)
  Receive Date: 20170417
  Receipt Date: 20170531
  Transmission Date: 20170830
  Serious: Yes (Other)
  Sender: FDA-Public Use
  Company Number: DE-PFIZER INC-2017160117

PATIENT
  Sex: Female

DRUGS (17)
  1. CODICAPS [Concomitant]
     Dosage: 30 MG, AS NEEDED
  2. SALBUTAMOL [Concomitant]
     Active Substance: ALBUTEROL
     Dosage: 0.1 MG, AS NEEDED
  3. SPIRIVA [Concomitant]
     Active Substance: TIOTROPIUM BROMIDE MONOHYDRATE
     Dosage: 18 UG, 1X/DAY (IN THE MORNING)
  4. BISOPROLOL [Concomitant]
     Active Substance: BISOPROLOL
     Dosage: 2.5 MG, 2X/DAY (IN THE MORNING AND IN THE EVENING)
  5. CALCIUM BETA [Concomitant]
     Dosage: UNK UNK, 1X/DAY (IN THE NOON)
  6. CANDESARTAN. [Concomitant]
     Active Substance: CANDESARTAN
     Dosage: 4 MG, 1X/DAY (IN THE MORNING)
  7. VIGANTOLETTEN [Concomitant]
     Active Substance: CHOLECALCIFEROL
     Dosage: UNK UNK, 2 DF IN THE MORNING
  8. CBD DROPS [Concomitant]
     Dosage: 2 DF, 4X/DAY (2DF IN THE MORNING, 2 DF IN THE EVENING, AS NEEDED ALSO MORE)
  9. CBD DROPS [Concomitant]
     Dosage: MORE DROPS IF NEEDED
  10. LYRICA [Suspect]
     Active Substance: PREGABALIN
     Indication: FIBROMYALGIA
     Dosage: 25 MG, UNK
     Dates: start: 2016
  11. LYRICA [Suspect]
     Active Substance: PREGABALIN
     Dosage: 100 MG, 2X/DAY
     Dates: start: 201607, end: 201704
  12. SELENIUM + ZINC [Concomitant]
     Dosage: 1 DF, UNK IN THE NOON
  13. DAXAS [Concomitant]
     Active Substance: ROFLUMILAST
     Dosage: 1 DF, ALTERNATE DAY (IN THE EVENING)
  14. LYRICA [Suspect]
     Active Substance: PREGABALIN
     Dosage: 75 MG, 2X/DAY (ONCE IN THE MORNING AND ONCE IN THE EVENING)
  15. HCT [Concomitant]
     Active Substance: HYDROCHLOROTHIAZIDE
     Dosage: 25 MG, 1X/DAY (IN THE MORNING)
  16. VERTIGOHEEL /07414001/ [Concomitant]
     Dosage: 3 DF, UNK (1IN THE MORNING, 1 NOON AND 1 IN EVENING)
  17. FORMATRIS [Concomitant]
     Active Substance: FORMOTEROL FUMARATE
     Dosage: 12 UG, 2X/DAY (IN THE MORNING AND EVENING)

REACTIONS (6)
  - Eye swelling [Recovered/Resolved]
  - Cerebrovascular accident [Recovered/Resolved]
  - Nausea [Recovered/Resolved]
  - Eyelid ptosis [Recovered/Resolved]
  - Dizziness [Recovered/Resolved]
  - Eye disorder [Recovered/Resolved]
